FAERS Safety Report 4333077-2 (Version None)
Quarter: 2004Q2

REPORT INFORMATION
  Report Type: 
  Country: None (occurrence: None)
  Receive Date: 20040401
  Receipt Date: 20040319
  Transmission Date: 20050107
  Serious: Yes (Other)
  Sender: FDA-Public Use
  Company Number: 2004-06830

PATIENT
  Age: 31 Year
  Sex: Female

DRUGS (4)
  1. VIREAD (TENOFOVIR DISOPROXIL FUMARATE) (TABLET) [Suspect]
     Indication: HIV INFECTION
     Dosage: 300 MG, ONCE A DAY, ORAL
     Route: 048
     Dates: start: 20030501
  2. DIDANOSINE (DIDANOSINE) [Concomitant]
  3. LAMIVUDINE (LAMIVUDINE) [Concomitant]
  4. COMBIVIR [Concomitant]

REACTIONS (5)
  - COMPLICATIONS OF MATERNAL EXPOSURE TO THERAPEUTIC DRUGS [None]
  - HYPERTENSION [None]
  - PRE-ECLAMPSIA [None]
  - PREGNANCY [None]
  - PREMATURE BABY [None]
